FAERS Safety Report 9775940 (Version 2)
Quarter: 2013Q4

REPORT INFORMATION
  Report Type: Spontaneous
  Country: US (occurrence: US)
  Receive Date: 20131220
  Receipt Date: 20131220
  Transmission Date: 20140711
  Serious: Yes (Other)
  Sender: FDA-Public Use
  Company Number: US-BAYER-US-SHR-03-004440

PATIENT
  Age: 61 Year
  Sex: Male

DRUGS (14)
  1. BETAPACE AF [Suspect]
     Indication: ATRIAL FIBRILLATION
     Dosage: 120 MG, BID
     Route: 048
     Dates: start: 2000
  2. COLESEVELAM HYDROCHLORIDE [Concomitant]
     Indication: BLOOD CHOLESTEROL ABNORMAL
     Dosage: UNK, UNK
     Dates: start: 200211
  3. DILTIAZEM [Concomitant]
  4. HYDROCHLOROTHIAZIDE [Concomitant]
  5. POTASSIUM [Concomitant]
  6. METFORMIN [Concomitant]
  7. WARFARIN [Concomitant]
  8. CRESTOR [Concomitant]
  9. LEVOTHYROXINE [Concomitant]
  10. FISH OIL [Concomitant]
  11. VITAMIN D3 [Concomitant]
  12. VITAMIN B12 [Concomitant]
  13. PRILOSEC [Concomitant]
  14. ASPIRIN [Concomitant]

REACTIONS (5)
  - Atrial fibrillation [Recovered/Resolved]
  - Abdominal discomfort [Recovered/Resolved]
  - Regurgitation [Recovered/Resolved]
  - Atrial fibrillation [None]
  - Atrial fibrillation [None]
